FAERS Safety Report 21699109 (Version 1)
Quarter: 2022Q4

REPORT INFORMATION
  Report Type: Report from Study
  Country: CA (occurrence: None)
  Receive Date: 20221208
  Receipt Date: 20221208
  Transmission Date: 20230113
  Serious: Yes (Other)
  Sender: FDA-Public Use
  Company Number: CA-PFIZER INC-202201249271

PATIENT
  Age: 44 Year
  Sex: Male

DRUGS (11)
  1. METHOTREXATE [Suspect]
     Active Substance: METHOTREXATE
     Indication: Product used for unknown indication
     Route: 065
  2. METHOTREXATE [Suspect]
     Active Substance: METHOTREXATE
     Route: 058
  3. METHOTREXATE [Suspect]
     Active Substance: METHOTREXATE
     Route: 048
  4. CELEBREX [Concomitant]
     Active Substance: CELECOXIB
     Route: 065
  5. CELEBREX [Concomitant]
     Active Substance: CELECOXIB
     Route: 048
  6. ENBREL [Concomitant]
     Active Substance: ETANERCEPT
     Route: 065
  7. ENBREL [Concomitant]
     Active Substance: ETANERCEPT
     Route: 058
  8. HUMIRA [Concomitant]
     Active Substance: ADALIMUMAB
     Route: 058
  9. VIOXX [Concomitant]
     Active Substance: ROFECOXIB
     Route: 065
  10. VIOXX [Concomitant]
     Active Substance: ROFECOXIB
     Route: 048
  11. PREDNISONE [Concomitant]
     Active Substance: PREDNISONE
     Route: 048

REACTIONS (14)
  - Drug ineffective [Unknown]
  - Dysstasia [Unknown]
  - Gait disturbance [Unknown]
  - Grip strength decreased [Unknown]
  - Impaired self-care [Unknown]
  - Pain [Unknown]
  - COVID-19 [Unknown]
  - Ankylosing spondylitis [Unknown]
  - Discomfort [Unknown]
  - Fatigue [Unknown]
  - Joint swelling [Unknown]
  - Musculoskeletal stiffness [Unknown]
  - Pain in jaw [Unknown]
  - Tenderness [Unknown]
